FAERS Safety Report 8918264 (Version 5)
Quarter: 2013Q3

REPORT INFORMATION
  Report Type: Report from Study
  Country: IT (occurrence: IT)
  Receive Date: 20121120
  Receipt Date: 20130726
  Transmission Date: 20140515
  Serious: Yes (Hospitalization)
  Sender: FDA-Public Use
  Company Number: IT-JNJFOC-20121105342

PATIENT
  Age: 81 Year
  Sex: Male
  Weight: 74 kg

DRUGS (8)
  1. ABIRATERONE ACETATE [Suspect]
     Route: 048
  2. ABIRATERONE ACETATE [Suspect]
     Indication: PROSTATE CANCER METASTATIC
     Route: 048
     Dates: start: 20120830, end: 20121105
  3. PREDNISONE [Suspect]
     Indication: PROSTATE CANCER METASTATIC
     Route: 048
     Dates: start: 20120830, end: 20121105
  4. PREDNISONE [Suspect]
     Indication: PROSTATE CANCER METASTATIC
     Route: 048
     Dates: start: 20120802
  5. PREDNISONE [Suspect]
     Indication: IMMUNOSUPPRESSANT DRUG THERAPY
     Route: 048
     Dates: start: 20120830, end: 20121105
  6. PREDNISONE [Suspect]
     Indication: IMMUNOSUPPRESSANT DRUG THERAPY
     Route: 048
     Dates: start: 20120802
  7. TRIPTORELINE [Concomitant]
     Indication: HORMONE THERAPY
     Route: 065
     Dates: start: 20120207
  8. WARFARIN [Concomitant]
     Indication: PULMONARY EMBOLISM
     Dates: start: 201204, end: 201211

REACTIONS (1)
  - Epistaxis [Recovered/Resolved]
